FAERS Safety Report 8129766-4 (Version None)
Quarter: 2012Q1

REPORT INFORMATION
  Report Type: 
  Country: None (occurrence: None)
  Receive Date: 20120103
  Receipt Date: 20110830
  Transmission Date: 20120608
  Serious: No
  Sender: FDA-Public Use
  Company Number: AE-2011-001134

PATIENT
  Age: 52 Year
  Sex: Male

DRUGS (10)
  1. LOPERAMIDE [Concomitant]
  2. ZOLPIDEM [Concomitant]
  3. INCIVEK [Suspect]
     Dates: start: 20110717
  4. PEGINTERFERON ALFA-2A [Concomitant]
  5. METOPROLOL TARTRATE [Concomitant]
  6. OMEPRAZOLE [Concomitant]
  7. ACETAMINOPHEN [Concomitant]
  8. RIBAVIRIN [Concomitant]
  9. IBUPROFEN [Concomitant]
  10. PROMETHAZINE [Concomitant]

REACTIONS (2)
  - ORAL DISCOMFORT [None]
  - APHAGIA [None]
